FAERS Safety Report 4525046-4 (Version None)
Quarter: 2004Q4

REPORT INFORMATION
  Report Type: 
  Country: None (occurrence: None)
  Receive Date: 20041117
  Receipt Date: 20031030
  Transmission Date: 20050328
  Serious: Yes (Other)
  Sender: FDA-Public Use
  Company Number: C2003-2864.01

PATIENT
  Age: 50 Year
  Sex: Male

DRUGS (6)
  1. CLOZAPINE [Suspect]
     Indication: SCHIZOAFFECTIVE DISORDER
     Dosage: 300MG QD, ORAL
     Route: 048
     Dates: start: 20030821, end: 20030910
  2. CLOZAPINE [Suspect]
     Indication: SCHIZOAFFECTIVE DISORDER
     Dosage: 300MG QD, ORAL
     Route: 048
     Dates: start: 20030923
  3. BENZTROPINE MESYLATE [Concomitant]
  4. CITALOPRAM HYDROBROMIDE [Concomitant]
  5. HALOPERIDOL LACTATE [Concomitant]
  6. LORAZEPAM [Concomitant]

REACTIONS (2)
  - DRUG INEFFECTIVE [None]
  - LEUKOPENIA [None]
